FAERS Safety Report 9974952 (Version 1)
Quarter: 2014Q1

REPORT INFORMATION
  Report Type: Report from Study
  Country: US (occurrence: US)
  Receive Date: 20140306
  Receipt Date: 20140306
  Transmission Date: 20141002
  Serious: No
  Sender: FDA-Public Use
  Company Number: US-ABBVIE-13P-163-1160781-00

PATIENT
  Age: 25 Year
  Sex: Female
  Weight: 102.15 kg

DRUGS (12)
  1. HUMIRA [Suspect]
     Indication: CROHN^S DISEASE
     Dates: start: 20130612, end: 20130612
  2. HUMIRA [Suspect]
     Indication: PSORIASIS
     Dates: start: 20130626
  3. TRAMADOL [Concomitant]
     Indication: ARTHRALGIA
  4. TRAMADOL [Concomitant]
     Indication: PRODUCT USED FOR UNKNOWN INDICATION
  5. PROMETHAZINE [Concomitant]
     Indication: NAUSEA
  6. DICYCLOMINE [Concomitant]
     Indication: CROHN^S DISEASE
  7. DICYCLOMINE [Concomitant]
     Indication: ABDOMINAL PAIN
  8. NUVARING [Concomitant]
     Indication: CONTRACEPTION
  9. FLURBIPROFEN/CYCLOBENZAPRINE/GABAPENTIN/LIDOCAINE/PRILOCAINE [Concomitant]
     Indication: ARTHRALGIA
     Route: 061
  10. CORDRAN [Concomitant]
     Indication: ARTHRALGIA
  11. BIOTIN [Concomitant]
     Indication: NAIL PSORIASIS
  12. DIPHENHYDRAMINE [Concomitant]
     Indication: PSORIASIS

REACTIONS (4)
  - Gastrooesophageal reflux disease [Not Recovered/Not Resolved]
  - Nasopharyngitis [Not Recovered/Not Resolved]
  - Headache [Not Recovered/Not Resolved]
  - Headache [Not Recovered/Not Resolved]
